FAERS Safety Report 4266356-8 (Version None)
Quarter: 2004Q1

REPORT INFORMATION
  Report Type: 
  Country: None (occurrence: None)
  Receive Date: 20040106
  Receipt Date: 20031229
  Transmission Date: 20041129
  Serious: Yes (Hospitalization)
  Sender: FDA-Public Use
  Company Number: 2003SE05033

PATIENT
  Age: 80 Year
  Sex: Female
  Weight: 35 kg

DRUGS (2)
  1. BLOPRESS [Suspect]
     Indication: HYPERTENSION
     Dosage: 4 MG QD PO
     Route: 048
     Dates: start: 20030902, end: 20030930
  2. LUPRAC (TRASEMIDE) [Suspect]
     Indication: OEDEMA
     Dosage: 4 MG QD PO
     Route: 048
     Dates: start: 20030902, end: 20030930

REACTIONS (9)
  - BLOOD PRESSURE SYSTOLIC INCREASED [None]
  - DEHYDRATION [None]
  - DIARRHOEA [None]
  - DYSSTASIA [None]
  - INFECTION [None]
  - MALAISE [None]
  - MARKEDLY REDUCED DIETARY INTAKE [None]
  - OEDEMA [None]
  - RHABDOMYOLYSIS [None]
